FAERS Safety Report 5634424-1 (Version None)
Quarter: 2008Q1

REPORT INFORMATION
  Report Type: 
  Country: None (occurrence: None)
  Receive Date: 20080131
  Receipt Date: 20070131
  Transmission Date: 20080703
  Serious: Yes (Hospitalization)
  Sender: FDA-Public Use
  Company Number: 148918USA

PATIENT
  Age: 35 Year
  Sex: Female
  Weight: 83.0083 kg

DRUGS (1)
  1. COPAXONE [Suspect]
     Indication: MULTIPLE SCLEROSIS
     Dosage: 20 MG (20 MG,1 IN 1 D), SUBCUTANEOUS
     Route: 058
     Dates: start: 20040801, end: 20060301

REACTIONS (1)
  - MULTIPLE SCLEROSIS RELAPSE [None]
